FAERS Safety Report 20478832 (Version 1)
Quarter: 2022Q1

REPORT INFORMATION
  Report Type: Spontaneous
  Country: SI (occurrence: SI)
  Receive Date: 20220216
  Receipt Date: 20220216
  Transmission Date: 20220424
  Serious: Yes (Hospitalization, Other)
  Sender: FDA-Public Use
  Company Number: SI-NOVARTISPH-NVSC2022SI029764

PATIENT
  Sex: Female

DRUGS (5)
  1. GILENYA [Suspect]
     Active Substance: FINGOLIMOD HYDROCHLORIDE
     Indication: Relapsing-remitting multiple sclerosis
     Dosage: UNK
     Route: 065
     Dates: start: 201506
  2. SOLU-MEDROL [Concomitant]
     Active Substance: METHYLPREDNISOLONE SODIUM SUCCINATE
     Indication: Product used for unknown indication
     Dosage: 5 G
     Route: 065
     Dates: start: 201208
  3. SOLU-MEDROL [Concomitant]
     Active Substance: METHYLPREDNISOLONE SODIUM SUCCINATE
     Dosage: 3 G
     Route: 065
     Dates: start: 201604
  4. SOLU-MEDROL [Concomitant]
     Active Substance: METHYLPREDNISOLONE SODIUM SUCCINATE
     Dosage: 5 G
     Route: 065
     Dates: start: 201608
  5. AVONEX [Concomitant]
     Active Substance: INTERFERON BETA-1A
     Indication: Product used for unknown indication
     Dosage: UNK
     Route: 065
     Dates: start: 201405

REACTIONS (16)
  - Dysarthria [Unknown]
  - Quadriplegia [Unknown]
  - Tremor [Unknown]
  - Cerebellar atrophy [Unknown]
  - Secondary progressive multiple sclerosis [Unknown]
  - Balance disorder [Unknown]
  - Dysphagia [Unknown]
  - Cognitive disorder [Unknown]
  - Disturbance in attention [Unknown]
  - Thinking abnormal [Unknown]
  - Memory impairment [Unknown]
  - Psychomotor retardation [Unknown]
  - Affective disorder [Unknown]
  - Gait disturbance [Unknown]
  - Cerebellar ataxia [Unknown]
  - Urinary tract infection [Unknown]

NARRATIVE: CASE EVENT DATE: 20151201
